FAERS Safety Report 8663088 (Version 3)
Quarter: 2013Q4

REPORT INFORMATION
  Report Type: Report from Study
  Country: US (occurrence: US)
  Receive Date: 20120713
  Receipt Date: 20131101
  Transmission Date: 20140711
  Serious: Yes (Other)
  Sender: FDA-Public Use
  Company Number: US-009507513-1207USA001291

PATIENT
  Age: 58 Year
  Sex: Female

DRUGS (4)
  1. VICTRELIS [Suspect]
     Indication: HEPATITIS C
     Dosage: UNK
     Dates: start: 20120527
  2. REBETOL [Suspect]
     Indication: HEPATITIS C
     Dosage: UNK
     Dates: start: 20120429, end: 20120625
  3. REBETOL [Suspect]
     Dosage: UNK
     Dates: start: 201207
  4. PEGASYS [Concomitant]
     Indication: HEPATITIS C
     Dosage: UNK
     Dates: start: 20120429

REACTIONS (11)
  - Haemoglobin decreased [Recovering/Resolving]
  - Pain [Unknown]
  - Memory impairment [Recovering/Resolving]
  - Disturbance in attention [Recovering/Resolving]
  - Somnolence [Unknown]
  - Dysstasia [Recovering/Resolving]
  - Dysgeusia [Unknown]
  - Gait disturbance [Recovering/Resolving]
  - Transfusion [Unknown]
  - Dizziness [Unknown]
  - Platelet count decreased [Unknown]
